FAERS Safety Report 14071776 (Version 7)
Quarter: 2018Q1

REPORT INFORMATION
  Report Type: Spontaneous
  Country: US (occurrence: US)
  Receive Date: 20171011
  Receipt Date: 20180308
  Transmission Date: 20180508
  Serious: No
  Sender: FDA-Public Use
  Company Number: US-PFIZER INC-2017434571

PATIENT
  Age: 57 Year
  Sex: Male
  Weight: 111 kg

DRUGS (7)
  1. SUTENT [Suspect]
     Active Substance: SUNITINIB MALATE
     Indication: METASTATIC RENAL CELL CARCINOMA
     Dosage: 50 MG, CYCLIC (DAILY FOR 28 DAYS ON AND 14 DAYS OFF)/(4 WEEKS ON AND 2 WEEKS OFF)
  2. SUTENT [Suspect]
     Active Substance: SUNITINIB MALATE
     Dosage: 50 MG, CYCLIC (2 WEEKS ON + 1 WEEK OFF)
     Dates: start: 20170925
  3. TENORMIN [Concomitant]
     Active Substance: ATENOLOL
     Dosage: UNK
  4. PRILOSEC [Concomitant]
     Active Substance: OMEPRAZOLE MAGNESIUM
     Dosage: UNK
  5. CRESTOR [Concomitant]
     Active Substance: ROSUVASTATIN CALCIUM
     Dosage: UNK
  6. FENOFIBRATE. [Concomitant]
     Active Substance: FENOFIBRATE
     Dosage: UNK
  7. IMODIUM [Concomitant]
     Active Substance: LOPERAMIDE HYDROCHLORIDE
     Dosage: UNK

REACTIONS (15)
  - Accidental overdose [Unknown]
  - Nausea [Not Recovered/Not Resolved]
  - Anxiety [Unknown]
  - Irritability [Unknown]
  - Weight decreased [Unknown]
  - Palpitations [Unknown]
  - Fatigue [Not Recovered/Not Resolved]
  - Diarrhoea [Not Recovered/Not Resolved]
  - White blood cell count decreased [Unknown]
  - Flushing [Unknown]
  - Dysgeusia [Unknown]
  - Ageusia [Unknown]
  - Headache [Unknown]
  - Blood pressure increased [Unknown]
  - Anaemia [Unknown]

NARRATIVE: CASE EVENT DATE: 2017
